FAERS Safety Report 8983146 (Version 2)
Quarter: 2012Q4

REPORT INFORMATION
  Report Type: 
  Country: BE (occurrence: BE)
  Receive Date: 20121224
  Receipt Date: 20121228
  Transmission Date: 20130627
  Serious: Yes (Other)
  Sender: FDA-Public Use
  Company Number: LU-AMGEN-LUXSP2012081877

PATIENT

DRUGS (4)
  1. PROLIA [Suspect]
     Indication: PRODUCT USED FOR UNKNOWN INDICATION
  2. LIPITOR [Concomitant]
  3. CALCIUM [Concomitant]
  4. VITAMIN D /00107901/ [Concomitant]

REACTIONS (8)
  - Von Willebrand^s factor antigen increased [Recovered/Resolved]
  - Endothelial dysfunction [Recovered/Resolved]
  - Ecchymosis [Recovered/Resolved]
  - Oedema peripheral [Recovered/Resolved]
  - Cyanosis [Recovered/Resolved]
  - Malaise [Recovered/Resolved]
  - Myalgia [Recovered/Resolved]
  - Drug hypersensitivity [Recovered/Resolved]
